FAERS Safety Report 17803844 (Version 2)
Quarter: 2020Q2

REPORT INFORMATION
  Report Type: Spontaneous
  Country: BR (occurrence: BR)
  Receive Date: 20200519
  Receipt Date: 20200526
  Transmission Date: 20200714
  Serious: Yes (Other)
  Sender: FDA-Public Use
  Company Number: BR-ALLERGAN-2019936US

PATIENT
  Sex: Male

DRUGS (6)
  1. OFTPRED [Concomitant]
     Indication: PREOPERATIVE CARE
     Dosage: 1 GTT, BID
     Route: 047
     Dates: end: 20200512
  2. ATORVASTATIN [Concomitant]
     Active Substance: ATORVASTATIN
  3. OFTPRED [Concomitant]
     Indication: POSTOPERATIVE CARE
  4. ACULAR CMC [Suspect]
     Active Substance: KETOROLAC TROMETHAMINE
     Indication: POSTOPERATIVE CARE
     Dosage: UNK
     Route: 047
     Dates: start: 202001, end: 202001
  5. ACULAR CMC [Suspect]
     Active Substance: KETOROLAC TROMETHAMINE
     Indication: CORNEAL OEDEMA
     Dosage: UNK
     Route: 047
     Dates: start: 201912, end: 201912
  6. ACULAR CMC [Suspect]
     Active Substance: KETOROLAC TROMETHAMINE
     Indication: PREOPERATIVE CARE
     Dosage: 1 GTT, Q12H
     Route: 047
     Dates: start: 202004, end: 20200512

REACTIONS (7)
  - Off label use [Unknown]
  - Corneal oedema [Not Recovered/Not Resolved]
  - Wrong product administered [Unknown]
  - Retinal oedema [Not Recovered/Not Resolved]
  - Cataract operation complication [Unknown]
  - Incorrect dose administered [Unknown]
  - Blindness unilateral [Not Recovered/Not Resolved]

NARRATIVE: CASE EVENT DATE: 20191203
